FAERS Safety Report 4455654-0 (Version None)
Quarter: 2004Q3

REPORT INFORMATION
  Report Type: 
  Country: None (occurrence: None)
  Receive Date: 20040920
  Receipt Date: 20040920
  Transmission Date: 20050211
  Serious: Yes (Hospitalization)
  Sender: FDA-Public Use
  Company Number: None

PATIENT
  Age: 69 Year
  Sex: Male
  Weight: 122 kg

DRUGS (10)
  1. NATRECOR [Suspect]
     Indication: CARDIAC FAILURE CONGESTIVE
     Dosage: 0.01 MCG/KG/MIN
  2. LEVOTHYROXINE SODIUM [Concomitant]
  3. CARBOMAZEPINE [Concomitant]
  4. FAMOTIDINE [Concomitant]
  5. ESCITALOPRAM OXALATE [Concomitant]
  6. ALLOPURINOL [Concomitant]
  7. INSULIN [Concomitant]
  8. APAP TAB [Concomitant]
  9. CODEINE [Concomitant]
  10. TRIAZOLAM [Concomitant]

REACTIONS (2)
  - HYPOTENSION [None]
  - INFUSION RELATED REACTION [None]
